FAERS Safety Report 9256781 (Version 2)
Quarter: 2013Q4

REPORT INFORMATION
  Report Type: Spontaneous
  Country: US (occurrence: US)
  Receive Date: 20130426
  Receipt Date: 20131220
  Transmission Date: 20140711
  Serious: Yes (Hospitalization, Other)
  Sender: FDA-Public Use
  Company Number: US-ASTRAZENECA-2013SE27529

PATIENT
  Age: 48 Year
  Sex: Female
  Weight: 68.9 kg

DRUGS (8)
  1. NEXIUM [Suspect]
     Indication: GASTROOESOPHAGEAL REFLUX DISEASE
     Route: 048
     Dates: start: 2004, end: 2009
  2. NEXIUM [Suspect]
     Indication: GASTROOESOPHAGEAL REFLUX DISEASE
     Route: 048
     Dates: start: 20080108
  3. VITAMIN D [Concomitant]
  4. VITAMIN B12 [Concomitant]
  5. DAILY VITAMINS [Concomitant]
  6. L-THYROXINE [Concomitant]
  7. THYROID [Concomitant]
  8. SERTRALINE [Concomitant]
     Dates: start: 20061108

REACTIONS (13)
  - Ankle fracture [Unknown]
  - Osteoarthritis [Unknown]
  - Ankle deformity [Unknown]
  - Carpal tunnel syndrome [Unknown]
  - Tibia fracture [Unknown]
  - Fibula fracture [Unknown]
  - Osteoporosis [Unknown]
  - Bone disorder [Unknown]
  - Multiple fractures [Unknown]
  - Body height decreased [Unknown]
  - Anger [Unknown]
  - Affective disorder [Unknown]
  - Depression [Unknown]
